FAERS Safety Report 8912318 (Version 4)
Quarter: 2013Q2

REPORT INFORMATION
  Report Type: Spontaneous
  Country: US (occurrence: None)
  Receive Date: 20121113
  Receipt Date: 20130418
  Transmission Date: 20140414
  Serious: No
  Sender: FDA-Public Use
  Company Number: US-010010

PATIENT
  Age: 9 Year
  Sex: Male
  Weight: 21.5 kg

DRUGS (6)
  1. SOMATROPIN [Suspect]
     Indication: GROWTH HORMONE DEFICIENCY
     Dates: start: 20121014
  2. SYNTHROID [Concomitant]
  3. CONCERTA [Concomitant]
  4. LANTUS /01483501/ [Concomitant]
  5. CLARITIN /00917501/ [Concomitant]
  6. TRAZODONE [Concomitant]

REACTIONS (1)
  - Blood glucose increased [None]
